FAERS Safety Report 14606651 (Version 1)
Quarter: 2018Q1

REPORT INFORMATION
  Report Type: Spontaneous
  Country: US (occurrence: US)
  Receive Date: 20180307
  Receipt Date: 20180307
  Transmission Date: 20180509
  Serious: No
  Sender: FDA-Public Use
  Company Number: US-TEVA-790937ACC

PATIENT
  Sex: Male

DRUGS (3)
  1. MYRBETRIQ [Suspect]
     Active Substance: MIRABEGRON
     Dosage: 50 MILLIGRAM DAILY;
     Route: 065
  2. GABAPENTIN. [Suspect]
     Active Substance: GABAPENTIN
     Indication: PRODUCT USED FOR UNKNOWN INDICATION
     Route: 065
  3. MYRBETRIQ [Suspect]
     Active Substance: MIRABEGRON
     Indication: POLLAKIURIA
     Dosage: 25 MILLIGRAM DAILY;
     Route: 065
     Dates: start: 201701

REACTIONS (4)
  - Constipation [Recovered/Resolved]
  - Drug ineffective [Unknown]
  - Blood pressure increased [Unknown]
  - Drug prescribing error [Unknown]
